FAERS Safety Report 9629249 (Version 1)
Quarter: 2013Q4

REPORT INFORMATION
  Report Type: Spontaneous
  Country: US (occurrence: US)
  Receive Date: 20131017
  Receipt Date: 20131017
  Transmission Date: 20140711
  Serious: No
  Sender: FDA-Public Use
  Company Number: US-ASTRAZENECA-2013SE73459

PATIENT
  Age: 67 Year
  Sex: Male

DRUGS (2)
  1. CRESTOR [Suspect]
     Indication: MYOCARDIAL INFARCTION
     Route: 050
  2. CRESTOR [Suspect]
     Indication: MYOCARDIAL INFARCTION
     Route: 050

REACTIONS (2)
  - Anxiety [Unknown]
  - Fatigue [Unknown]
